FAERS Safety Report 17615799 (Version 1)
Quarter: 2020Q2

REPORT INFORMATION
  Report Type: Spontaneous
  Country: US (occurrence: US)
  Receive Date: 20200401
  Receipt Date: 20200401
  Transmission Date: 20200713
  Serious: Yes (Hospitalization, Disabling)
  Sender: FDA-Public Use
  Company Number: None

PATIENT
  Age: 86 Year
  Sex: Female
  Weight: 76.5 kg

DRUGS (2)
  1. VORICONAZOLE. [Suspect]
     Active Substance: VORICONAZOLE
  2. OXYCODONE-ACETAMINOPHEN 10-325 [Suspect]
     Active Substance: ACETAMINOPHEN\OXYCODONE HYDROCHLORIDE
     Indication: PAIN
     Dosage: ?          QUANTITY:1 TABLET(S);?
     Route: 048
     Dates: start: 20161123, end: 20170815

REACTIONS (7)
  - Product expiration date issue [None]
  - Wrong product administered [None]
  - Wrong product stored [None]
  - Formication [None]
  - Mental impairment [None]
  - Hallucination [None]
  - Abnormal behaviour [None]

NARRATIVE: CASE EVENT DATE: 20170201
